FAERS Safety Report 5480973-9 (Version None)
Quarter: 2007Q4

REPORT INFORMATION
  Report Type: 
  Country: None (occurrence: None)
  Receive Date: 20071009
  Receipt Date: 20070930
  Transmission Date: 20080405
  Serious: Yes (Hospitalization)
  Sender: FDA-Public Use
  Company Number: US-AMGEN-QUU245699

PATIENT
  Sex: Female

DRUGS (1)
  1. ENBREL [Suspect]
     Indication: RHEUMATOID ARTHRITIS
     Route: 058
     Dates: start: 20040605

REACTIONS (4)
  - HEPATIC ENZYME INCREASED [None]
  - KNEE OPERATION [None]
  - THERAPEUTIC RESPONSE DELAYED [None]
  - WEIGHT INCREASED [None]
